FAERS Safety Report 18178375 (Version 1)
Quarter: 2020Q3

REPORT INFORMATION
  Report Type: Spontaneous
  Country: ES (occurrence: ES)
  Receive Date: 20200821
  Receipt Date: 20200821
  Transmission Date: 20201103
  Serious: Yes (Other)
  Sender: FDA-Public Use
  Company Number: ES-ROCHE-2663092

PATIENT
  Age: 37 Year
  Sex: Male

DRUGS (10)
  1. COLCHICINA [Concomitant]
     Active Substance: COLCHICINE
     Indication: COVID-19 PNEUMONIA
     Route: 048
     Dates: start: 20200731, end: 20200801
  2. EPLERENONA [Concomitant]
     Active Substance: EPLERENONE
     Route: 048
  3. REMDESIVIR. [Suspect]
     Active Substance: REMDESIVIR
     Route: 042
     Dates: start: 20200801, end: 20200803
  4. PARACETAMOL [Concomitant]
     Active Substance: ACETAMINOPHEN
     Route: 055
     Dates: start: 20200731, end: 20200803
  5. DEXAMETASONA [Concomitant]
     Active Substance: DEXAMETHASONE
     Route: 048
     Dates: start: 20200808, end: 20200809
  6. ROACTEMRA [Suspect]
     Active Substance: TOCILIZUMAB
     Indication: COVID-19 PNEUMONIA
     Route: 042
     Dates: start: 20200801, end: 20200802
  7. REMDESIVIR. [Suspect]
     Active Substance: REMDESIVIR
     Indication: COVID-19 PNEUMONIA
     Route: 042
     Dates: start: 20200731, end: 20200731
  8. DEXAMETASONA [Concomitant]
     Active Substance: DEXAMETHASONE
     Indication: COVID-19 PNEUMONIA
     Route: 042
     Dates: start: 20200731, end: 20200807
  9. COMBIPRASAL [Concomitant]
     Active Substance: ALBUTEROL SULFATE\IPRATROPIUM BROMIDE
     Route: 055
     Dates: start: 20200731, end: 20200803
  10. CLEXANE [Concomitant]
     Active Substance: ENOXAPARIN SODIUM
     Route: 058
     Dates: start: 20200731, end: 20200806

REACTIONS (1)
  - Hypertransaminasaemia [Recovering/Resolving]

NARRATIVE: CASE EVENT DATE: 20200803
